FAERS Safety Report 11336758 (Version 1)
Quarter: 2015Q3

REPORT INFORMATION
  Report Type: Report from Study
  Country: US (occurrence: US)
  Receive Date: 20150804
  Receipt Date: 20150804
  Transmission Date: 20151125
  Serious: No
  Sender: FDA-Public Use
  Company Number: US-CELGENEUS-USA-2015071825

PATIENT
  Sex: Female

DRUGS (14)
  1. REVLIMID [Suspect]
     Active Substance: LENALIDOMIDE
     Indication: PLASMA CELL MYELOMA
     Dosage: INDUCTION
     Route: 048
  2. REVLIMID [Suspect]
     Active Substance: LENALIDOMIDE
     Dosage: REDUCED DUE TO LOW BLOOD COUNTS
     Route: 048
  3. CURCUMIN [Concomitant]
     Active Substance: CURCUMIN
     Indication: PRODUCT USED FOR UNKNOWN INDICATION
     Dosage: 500 MILLIGRAM
     Route: 065
  4. ASPIRIN. [Suspect]
     Active Substance: ASPIRIN
     Indication: THROMBOSIS PROPHYLAXIS
     Dosage: 1600 MILLIGRAM
     Route: 065
  5. DEXAMETHASONE. [Suspect]
     Active Substance: DEXAMETHASONE
     Indication: PLASMA CELL MYELOMA
     Route: 065
  6. ZOMETA [Concomitant]
     Active Substance: ZOLEDRONIC ACID
     Indication: BONE DISORDER
     Route: 050
  7. CALCIUM [Concomitant]
     Active Substance: CALCIUM
     Indication: PRODUCT USED FOR UNKNOWN INDICATION
     Route: 065
  8. REVLIMID [Suspect]
     Active Substance: LENALIDOMIDE
     Dosage: MAINTENANCE POST ASCT
     Route: 048
  9. ZOMETA [Concomitant]
     Active Substance: ZOLEDRONIC ACID
     Route: 050
  10. MULTIVITAMIN [Concomitant]
     Active Substance: VITAMINS
     Indication: PRODUCT USED FOR UNKNOWN INDICATION
     Dosage: 2 GRAM
     Route: 065
  11. ACYCLOVIR. [Concomitant]
     Active Substance: ACYCLOVIR
     Indication: HERPES ZOSTER
     Route: 065
  12. REVLIMID [Suspect]
     Active Substance: LENALIDOMIDE
     Dosage: POST RELAPSE
     Route: 048
  13. DEXAMETHASONE. [Suspect]
     Active Substance: DEXAMETHASONE
     Route: 065
  14. HCTZ [Concomitant]
     Active Substance: HYDROCHLOROTHIAZIDE
     Indication: BLOOD PRESSURE MEASUREMENT
     Route: 065

REACTIONS (28)
  - Rash [Recovered/Resolved]
  - Depression [Unknown]
  - Muscle spasms [Unknown]
  - Infection [Recovered/Resolved]
  - Frustration [Unknown]
  - Vitamin D decreased [Unknown]
  - Nausea [Unknown]
  - Pruritus [Unknown]
  - Plasma cell myeloma recurrent [Unknown]
  - Fracture pain [Unknown]
  - Fatigue [Unknown]
  - Muscle spasms [Recovering/Resolving]
  - Light chain analysis increased [Unknown]
  - Therapeutic response delayed [Unknown]
  - Respiratory tract infection [Recovered/Resolved]
  - Diarrhoea [Unknown]
  - Oral mucosal eruption [Unknown]
  - Full blood count decreased [Unknown]
  - Neutropenia [Unknown]
  - Dry skin [Unknown]
  - Cognitive disorder [Unknown]
  - Faeces hard [Unknown]
  - Cheilitis [Unknown]
  - Increased tendency to bruise [Unknown]
  - Monoclonal immunoglobulin present [Unknown]
  - Oedema peripheral [Unknown]
  - Adverse drug reaction [Unknown]
  - Herpes zoster [Unknown]
